FAERS Safety Report 5022611-5 (Version None)
Quarter: 2006Q2

REPORT INFORMATION
  Report Type: 
  Country: None (occurrence: None)
  Receive Date: 20060605
  Receipt Date: 20060522
  Transmission Date: 20061013
  Serious: Yes (Life-Threatening)
  Sender: FDA-Public Use
  Company Number: 2006067210

PATIENT
  Age: 55 Year
  Sex: Female
  Weight: 75 kg

DRUGS (7)
  1. NEURONTIN [Suspect]
     Indication: ILL-DEFINED DISORDER
     Dosage: 1.5 DOSAGE FORM (3 IN 1 D), ORAL
     Route: 048
     Dates: start: 20060411
  2. XANAX [Suspect]
     Indication: ANXIETY
     Dosage: 0.125 MG (0.25 MG, 1 IN 1 D), ORAL
     Route: 048
     Dates: start: 20060406
  3. CLONAZEPAM [Suspect]
     Indication: ILL-DEFINED DISORDER
     Dosage: 3 DOSAGE FORM (1 D), ORAL
     Route: 048
     Dates: start: 20060410
  4. BROMAZEPAM (BROMAZEPAM) [Suspect]
     Indication: ILL-DEFINED DISORDER
     Dosage: 0.5 DOSAGE FORM, ORAL
     Route: 048
     Dates: start: 20060412
  5. MYOLASTAN (TETRAZEPAM) [Suspect]
     Indication: ILL-DEFINED DISORDER
     Dosage: 50 MG (50 MG, 1 IN 1 D), ORAL
     Route: 048
     Dates: start: 20060406, end: 20060410
  6. MORPHINE [Suspect]
     Indication: GENERAL PHYSICAL CONDITION
     Dosage: 0.5 DOSAGE FORM, SUBCUTANEOUS
     Route: 058
     Dates: start: 20060412
  7. STABLON (TIANEPTINE) [Concomitant]

REACTIONS (5)
  - BLOOD PRESSURE DECREASED [None]
  - DRUG INTERACTION [None]
  - MIOSIS [None]
  - RESPIRATORY DEPRESSION [None]
  - SOMNOLENCE [None]
